FAERS Safety Report 11655105 (Version 1)
Quarter: 2015Q4

REPORT INFORMATION
  Report Type: Spontaneous
  Country: US (occurrence: US)
  Receive Date: 20151023
  Receipt Date: 20151023
  Transmission Date: 20160304
  Serious: Yes (Death)
  Sender: FDA-Public Use
  Company Number: US-PFIZER INC-2015350110

PATIENT
  Age: 44 Year
  Sex: Female
  Weight: 68.1 kg

DRUGS (4)
  1. CAMPTOSAR [Suspect]
     Active Substance: IRINOTECAN HYDROCHLORIDE
     Dosage: 600, CYCLIC (EVERY 21 DAYS)
     Route: 042
     Dates: start: 20150923, end: 20150923
  2. CAMPTOSAR [Suspect]
     Active Substance: IRINOTECAN HYDROCHLORIDE
     Indication: COLON CANCER
     Dosage: 330 MG, CYCLIC (EVERY 21 DAYS)
     Route: 042
     Dates: start: 201506, end: 201506
  3. CAMPTOSAR [Suspect]
     Active Substance: IRINOTECAN HYDROCHLORIDE
     Dosage: 625 MG, CYCLIC (EVERY 21 DAYS)
     Route: 042
  4. CAMPTOSAR [Suspect]
     Active Substance: IRINOTECAN HYDROCHLORIDE
     Dosage: 330 MG, CYCLIC (EVERY 21 DAYS)
     Route: 042

REACTIONS (3)
  - Death [Fatal]
  - Colon cancer [Fatal]
  - Disease progression [Fatal]

NARRATIVE: CASE EVENT DATE: 20151002
